FAERS Safety Report 20729313 (Version 2)
Quarter: 2024Q2

REPORT INFORMATION
  Report Type: Spontaneous
  Country: PL (occurrence: PL)
  Receive Date: 20220420
  Receipt Date: 20240628
  Transmission Date: 20240716
  Serious: Yes (Life-Threatening, Other)
  Sender: FDA-Public Use
  Company Number: PL-TEVA-2022-PL-2028645

PATIENT
  Age: 43 Year
  Sex: Female

DRUGS (2)
  1. ACETAMINOPHEN\TRAMADOL [Suspect]
     Active Substance: ACETAMINOPHEN\TRAMADOL
     Dosage: DOSAGE TEXT: TRAMADOL + PARACETAMOL = 75MG + 650MG
     Route: 065
     Dates: start: 2012
  2. BUPRENORPHINE [Suspect]
     Active Substance: BUPRENORPHINE\BUPRENORPHINE HYDROCHLORIDE
     Dosage: DOSAGE TEXT: DOSE: 35  G/H, FORM OF ADMINISTRATION PATCH, FREQUENCY EVERY 96 HOURS.
     Route: 065

REACTIONS (10)
  - Asthenia [Recovered/Resolved]
  - Therapeutic product effect incomplete [Unknown]
  - Respiratory depression [Recovered/Resolved]
  - Incorrect dose administered [Unknown]
  - Nausea [Recovered/Resolved]
  - Vomiting [Recovered/Resolved]
  - Pupil constriction procedure [Recovered/Resolved]
  - Dyspnoea [Recovered/Resolved]
  - Hypopnoea [Recovered/Resolved]
  - Apnoea [Recovered/Resolved]
